FAERS Safety Report 6014207-3 (Version None)
Quarter: 2008Q4

REPORT INFORMATION
  Report Type: 
  Country: None (occurrence: None)
  Receive Date: 20081219
  Receipt Date: 20080213
  Transmission Date: 20090506
  Serious: No
  Sender: FDA-Public Use
  Company Number: A0709388A

PATIENT
  Age: 79 Year
  Sex: Male

DRUGS (5)
  1. AVODART [Suspect]
     Indication: BENIGN PROSTATIC HYPERPLASIA
     Dosage: 1CAP PER DAY
     Route: 048
     Dates: start: 20080108
  2. LIPITOR [Concomitant]
  3. COUMADIN [Concomitant]
  4. NADOLOL [Concomitant]
  5. FLOMAX [Concomitant]

REACTIONS (4)
  - ERECTILE DYSFUNCTION [None]
  - LOSS OF LIBIDO [None]
  - MALE SEXUAL DYSFUNCTION [None]
  - VIRILISM [None]
